FAERS Safety Report 8099874-5 (Version None)
Quarter: 2012Q1

REPORT INFORMATION
  Report Type: 
  Country: None (occurrence: None)
  Receive Date: 20120129
  Receipt Date: 20111010
  Transmission Date: 20120608
  Serious: No
  Sender: FDA-Public Use
  Company Number: US-ABBOTT-11P-163-0862765-00

PATIENT
  Sex: Female
  Weight: 36.32 kg

DRUGS (5)
  1. HUMIRA [Suspect]
     Route: 058
     Dates: start: 20110903, end: 20110903
  2. HUMIRA [Suspect]
     Route: 058
  3. HUMIRA [Suspect]
     Route: 058
     Dates: start: 20110917, end: 20110917
  4. HUMIRA [Suspect]
     Route: 058
     Dates: start: 20110819, end: 20110819
  5. HUMIRA [Suspect]
     Indication: CROHN'S DISEASE
     Route: 058
     Dates: start: 20110818, end: 20110818

REACTIONS (16)
  - FEELING JITTERY [None]
  - INJECTION SITE PAPULE [None]
  - OCULAR ICTERUS [None]
  - FATIGUE [None]
  - INJECTION SITE REACTION [None]
  - OVERDOSE [None]
  - INJECTION SITE ERYTHEMA [None]
  - INJECTION SITE RASH [None]
  - VISION BLURRED [None]
  - INJECTION SITE PRURITUS [None]
  - TREMOR [None]
  - FEELING ABNORMAL [None]
  - WEIGHT DECREASED [None]
  - NERVOUSNESS [None]
  - INCORRECT DOSE ADMINISTERED [None]
  - INJECTION SITE SWELLING [None]
